FAERS Safety Report 6425449-7 (Version None)
Quarter: 2009Q4

REPORT INFORMATION
  Report Type: 
  Country: None (occurrence: None)
  Receive Date: 20091103
  Receipt Date: 20091023
  Transmission Date: 20100525
  Serious: Yes (Death, Hospitalization, Other)
  Sender: FDA-Public Use
  Company Number: DE-PFIZER INC-2009250302

PATIENT
  Age: 72 Year
  Sex: Female
  Weight: 80 kg

DRUGS (19)
  1. ZYVOXID [Suspect]
     Indication: STAPHYLOCOCCAL INFECTION
     Dosage: 600 MG, 2X/DAY
     Route: 042
     Dates: start: 20090623, end: 20090704
  2. ZYVOXID [Suspect]
     Indication: LUNG ABSCESS
  3. ZYVOXID [Suspect]
     Indication: TRACHEOBRONCHITIS
  4. ZYVOXID [Suspect]
     Dosage: 600 MG, 2X/DAY
     Route: 048
     Dates: start: 20090704, end: 20090802
  5. ZYVOXID [Suspect]
  6. ZYVOXID [Suspect]
  7. ASPIRIN [Concomitant]
     Dosage: 100 MG, 1X/DAY
  8. SIMVASTATIN [Concomitant]
     Dosage: 20 MG, 1X/DAY
  9. AMLODIPINE [Concomitant]
     Dosage: 5 MG, 2X/DAY
  10. TORSEMIDE [Concomitant]
     Dosage: 5 MG, 1X/DAY
  11. PHYSIOTENS [Concomitant]
     Dosage: UNK
  12. FERROUS SULFATE TAB [Concomitant]
     Dosage: 1 DF, 1X/DAY
  13. PANTOPRAZOLE SODIUM [Concomitant]
     Dosage: 40 MG, 1X/DAY
  14. DECORTIN [Concomitant]
     Dosage: 7.5 MG, 1X/DAY
  15. LEKOVIT CA [Concomitant]
     Dosage: 1 DF, 2X/DAY
  16. KALINOR-BRAUSETABLETTEN [Concomitant]
     Dosage: 1 DF, 1X/DAY
  17. SPIRIVA [Concomitant]
     Dosage: 1 DF, 1X/DAY
  18. VIANI [Concomitant]
     Dosage: 1 DF, 2X/DAY
  19. ISOPTIN - SLOW RELEASE [Concomitant]
     Dosage: 240 MG, 2X/DAY

REACTIONS (6)
  - CARDIAC ARREST [None]
  - LACTIC ACIDOSIS [None]
  - MULTI-ORGAN FAILURE [None]
  - RENAL FAILURE ACUTE [None]
  - SUPRAVENTRICULAR TACHYCARDIA [None]
  - VENTRICULAR EXTRASYSTOLES [None]
